FAERS Safety Report 8328281-2 (Version None)
Quarter: 2012Q2

REPORT INFORMATION
  Report Type: 
  Country: None (occurrence: None)
  Receive Date: 20120502
  Receipt Date: 20120425
  Transmission Date: 20120825
  Serious: Yes (Other)
  Sender: FDA-Public Use
  Company Number: JP-ASTELLAS-2012JP003669

PATIENT
  Age: 49 Year
  Sex: Male

DRUGS (11)
  1. PAXIL [Concomitant]
     Route: 065
  2. BIASAN [Concomitant]
     Route: 065
  3. DIFLUNISAL [Concomitant]
     Route: 048
  4. VESICARE [Suspect]
     Dosage: 5 MG, UNKNOWN/D
     Route: 048
     Dates: start: 20111212
  5. ALPRAZOLAM [Suspect]
     Route: 048
  6. LUMIGAN [Concomitant]
     Route: 065
  7. BESTRON [Concomitant]
     Route: 065
  8. TASMOLIN [Concomitant]
     Route: 065
  9. NEORAL [Concomitant]
     Route: 048
  10. RISPERDAL [Suspect]
     Route: 048
  11. HYALEIN [Concomitant]
     Route: 065

REACTIONS (1)
  - INTRAOCULAR PRESSURE INCREASED [None]
